FAERS Safety Report 4607676-4 (Version None)
Quarter: 2005Q1

REPORT INFORMATION
  Report Type: 
  Country: None (occurrence: None)
  Receive Date: 20050310
  Receipt Date: 20050301
  Transmission Date: 20050727
  Serious: Yes (Death, Other)
  Sender: FDA-Public Use
  Company Number: 2004-00591

PATIENT
  Age: 50 Year
  Sex: Female
  Weight: 115 kg

DRUGS (1)
  1. VELCADE [Suspect]
     Indication: PLASMACYTOMA
     Dosage: 1.30 MG/M2, INTRAVENOUS
     Route: 042
     Dates: start: 20040907, end: 20041007

REACTIONS (8)
  - ASTHENIA [None]
  - BLOOD LACTATE DEHYDROGENASE INCREASED [None]
  - CRANIAL NERVE PALSIES MULTIPLE [None]
  - DIPLOPIA [None]
  - HEADACHE [None]
  - MALIGNANT NEOPLASM PROGRESSION [None]
  - MULTIPLE MYELOMA [None]
  - PROTEINURIA [None]
